FAERS Safety Report 4666182-1 (Version None)
Quarter: 2005Q2

REPORT INFORMATION
  Report Type: 
  Country: None (occurrence: None)
  Receive Date: 20050519
  Receipt Date: 20050512
  Transmission Date: 20051028
  Serious: Yes (Other)
  Sender: FDA-Public Use
  Company Number: PHBS2005BE06923

PATIENT
  Age: 55 Year
  Sex: Female

DRUGS (5)
  1. DOCETAXEL [Concomitant]
     Dosage: 75 MG/M2/D
     Route: 065
     Dates: start: 20041217, end: 20050330
  2. SOLU-MEDROL [Concomitant]
     Dosage: 125 MG/CYCLE
     Route: 065
     Dates: start: 20041217, end: 20050330
  3. MEDROL [Concomitant]
     Dosage: 32 MG/CYCLE
     Route: 065
     Dates: start: 20041217, end: 20050330
  4. FEMARA [Suspect]
     Dates: start: 20020101, end: 20041201
  5. ZOMETA [Suspect]
     Route: 042
     Dates: start: 20041110

REACTIONS (6)
  - ABSCESS ORAL [None]
  - DENTAL OPERATION [None]
  - METASTASES TO LIVER [None]
  - METASTASES TO LUNG [None]
  - OSTEONECROSIS [None]
  - SWELLING [None]
